FAERS Safety Report 9642747 (Version 1)
Quarter: 2013Q4

REPORT INFORMATION
  Report Type: Spontaneous
  Country: BR (occurrence: BR)
  Receive Date: 20131024
  Receipt Date: 20131024
  Transmission Date: 20140711
  Serious: Yes (Hospitalization, Other)
  Sender: FDA-Public Use
  Company Number: BR-AMGEN-BRASP2013075056

PATIENT
  Age: 62 Year
  Sex: Female
  Weight: 77 kg

DRUGS (9)
  1. ENBREL [Suspect]
     Indication: PSORIATIC ARTHROPATHY
     Dosage: 50 MG, 1X/WEEK
     Route: 058
     Dates: start: 2011
  2. ENBREL [Suspect]
     Dosage: 50 MG, 1X/WEEK
     Route: 058
     Dates: start: 201305, end: 2013
  3. MERITOR [Concomitant]
     Indication: DIABETES MELLITUS
     Dosage: [GLIMEPIRIDE 2MG]/ [METFORMIN HYDROCHORIDE 1000MG], 2X (UNSPECIFIED)
  4. APROVEL [Concomitant]
     Dosage: 150 MG, 2X/DAY
     Dates: start: 2009
  5. TENORETIC [Concomitant]
     Indication: BLOOD PRESSURE ABNORMAL
     Dosage: [ATENOLOL 12.5]/ [CHLORTALIDONE 50], 1X/DAY
  6. METHOTREXATE [Concomitant]
     Dosage: 5 MG, 1X/WEEK
  7. FOLIC ACID [Concomitant]
     Dosage: 5 MG, 1X/WEEK
  8. LIPANON [Concomitant]
     Indication: BLOOD TRIGLYCERIDES
     Dosage: 250 MG, 1X/DAY
     Dates: start: 2011
  9. ACTUS [Concomitant]
     Indication: DIABETES MELLITUS
     Dosage: 40 MG, 1X/DAY
     Dates: start: 2011

REACTIONS (4)
  - Diabetes mellitus [Unknown]
  - Blood pressure increased [Unknown]
  - Infection [Unknown]
  - Urinary tract infection [Recovering/Resolving]
